FAERS Safety Report 8108734-2 (Version None)
Quarter: 2012Q1

REPORT INFORMATION
  Report Type: 
  Country: None (occurrence: None)
  Receive Date: 20120202
  Receipt Date: 20120112
  Transmission Date: 20120608
  Serious: No
  Sender: FDA-Public Use
  Company Number: US-AMGEN-USASP2011038447

PATIENT
  Age: 46 Year
  Sex: Female

DRUGS (7)
  1. OXYCODONE HCL [Concomitant]
     Indication: BACK PAIN
     Dosage: PRN
     Route: 048
  2. SENNA                              /00142201/ [Concomitant]
     Dosage: PRN
     Route: 048
  3. ENBREL [Suspect]
     Indication: RHEUMATOID ARTHRITIS
     Dosage: 50 MG, QWK
     Route: 058
     Dates: start: 20110714, end: 20111214
  4. PREDNISONE TAB [Concomitant]
     Indication: RHEUMATOID ARTHRITIS
     Dosage: 5 MG, QD
     Route: 048
     Dates: start: 20110612
  5. METHADONE HCL [Concomitant]
     Indication: BACK PAIN
     Dosage: 10 MG, QHS
     Route: 048
  6. COLACE [Concomitant]
     Dosage: PRN
     Route: 048
  7. ARAVA [Concomitant]
     Indication: RHEUMATOID ARTHRITIS
     Dosage: 20 MG, QD
     Route: 048
     Dates: start: 20110811

REACTIONS (3)
  - INJECTION SITE REACTION [None]
  - SUPERINFECTION [None]
  - DRUG INEFFECTIVE [None]
